FAERS Safety Report 9393677 (Version 1)
Quarter: 2013Q3

REPORT INFORMATION
  Report Type: Spontaneous
  Country: PL (occurrence: None)
  Receive Date: 20130705
  Receipt Date: 20130705
  Transmission Date: 20140515
  Serious: Yes (Other)
  Sender: FDA-Public Use
  Company Number: AUR-APL-2013-05613

PATIENT
  Age: 51 Year
  Sex: Female
  Weight: 56 kg

DRUGS (8)
  1. AMLODIPINE (AMLODIPINE) [Suspect]
     Indication: HYPERTENSION
     Dosage: 10 MG (10 MG, 1 IN 1 D), UNKNOWN
  2. RAMIPRIL (RAMIPRIL) [Suspect]
     Indication: HYPERTENSION
     Dosage: 10 MG (10 MG, 1 IN 1 D), UNKNOWN
  3. BISOPROLOL [Suspect]
     Indication: HYPERTENSION
     Dosage: 10 MG (10 MG, 1 IN 1 D), UNK
  4. DOXAZOSIN [Suspect]
     Indication: HYPERTENSION
     Dosage: 4 MG (4 MG, 1 IN 1 D), UNK
  5. CHLORTALIDONE [Suspect]
     Indication: HYPERTENSION
     Dosage: 25 MG (25 MG, 1 IN 1 D), UNK
  6. RILMENIDINE [Suspect]
     Indication: HYPERTENSION
     Dosage: 1 MG (1 MG, 1 IN 1 D), UNK
  7. ATORVASTATIN (ATORVASTATIN) [Concomitant]
  8. POTASSIUM CHLORIDE (POTASSIUM CHLORIDE) [Concomitant]

REACTIONS (6)
  - Headache [None]
  - Snoring [None]
  - Somnolence [None]
  - Sleep disorder [None]
  - Drug ineffective [None]
  - Sleep apnoea syndrome [None]
